FAERS Safety Report 9322465 (Version 1)
Quarter: 2013Q2

REPORT INFORMATION
  Report Type: Spontaneous
  Country: GR (occurrence: GR)
  Receive Date: 20130531
  Receipt Date: 20130531
  Transmission Date: 20140414
  Serious: Yes (Life-Threatening)
  Sender: FDA-Public Use
  Company Number: GR-009507513-1305GRC013655

PATIENT
  Age: 37 Year
  Sex: Female

DRUGS (2)
  1. NOROCIN [Suspect]
     Indication: CYSTITIS
     Dosage: UNK
  2. CEFUROXIME [Suspect]
     Indication: CYSTITIS ESCHERICHIA
     Dosage: UNK

REACTIONS (7)
  - Urosepsis [Unknown]
  - Drug ineffective [Unknown]
  - Escherichia sepsis [None]
  - Respiratory failure [None]
  - Lung infiltration [None]
  - Septic shock [None]
  - Renal abscess [None]
